FAERS Safety Report 24273275 (Version 1)
Quarter: 2024Q3

REPORT INFORMATION
  Report Type: Spontaneous
  Country: RO (occurrence: RO)
  Receive Date: 20240902
  Receipt Date: 20240902
  Transmission Date: 20241017
  Serious: Yes (Other)
  Sender: MACLEODS
  Company Number: RO-MLMSERVICE-20240814-PI161719-00323-2

PATIENT

DRUGS (6)
  1. TRIAMCINOLONE [Suspect]
     Active Substance: TRIAMCINOLONE
     Indication: Vertebral foraminal stenosis
     Dosage: LEFT L4-L5 TRANSFORAMINAL ESI
     Route: 008
  2. TRIAMCINOLONE [Suspect]
     Active Substance: TRIAMCINOLONE
     Indication: Lumbar spinal stenosis
  3. TRIAMCINOLONE [Suspect]
     Active Substance: TRIAMCINOLONE
     Indication: Lumbar spinal stenosis
  4. BUPIVACAINE [Concomitant]
     Active Substance: BUPIVACAINE
     Dosage: LEFT L4-L5 TRANSFORAMINAL ESI CONSISTING OF A MIXTURE OF 1 ML OF 0.5% BUPIVACAINE
     Route: 008
  5. BUPIVACAINE [Concomitant]
     Active Substance: BUPIVACAINE
  6. BUPIVACAINE [Concomitant]
     Active Substance: BUPIVACAINE

REACTIONS (2)
  - Depression suicidal [Recovered/Resolved]
  - Anhedonia [Recovered/Resolved]
